FAERS Safety Report 9734351 (Version 2)
Quarter: 2014Q1

REPORT INFORMATION
  Report Type: Spontaneous
  Country: FR (occurrence: FR)
  Receive Date: 20131206
  Receipt Date: 20140107
  Transmission Date: 20141002
  Serious: Yes (Life-Threatening)
  Sender: FDA-Public Use
  Company Number: FR-ROCHE-1313375

PATIENT
  Age: 93 Year
  Sex: Male

DRUGS (10)
  1. MABTHERA [Suspect]
     Indication: HAIRY CELL LEUKAEMIA
     Route: 042
     Dates: start: 20131107, end: 20131107
  2. SPIRIVA [Concomitant]
  3. FORADIL [Concomitant]
  4. TAHOR [Concomitant]
     Route: 065
  5. INEXIUM [Concomitant]
     Route: 065
  6. DOMPERIDONE [Concomitant]
  7. LEVOTHYROX [Concomitant]
  8. POLARAMINE [Concomitant]
  9. SOLU-MEDROL [Concomitant]
  10. DAFALGAN [Concomitant]

REACTIONS (7)
  - Malaise [Recovered/Resolved with Sequelae]
  - Orthopnoea [Recovered/Resolved with Sequelae]
  - Oxygen saturation decreased [Recovered/Resolved with Sequelae]
  - Bradycardia [Recovered/Resolved with Sequelae]
  - Ventricular tachycardia [Recovered/Resolved with Sequelae]
  - Ventricular extrasystoles [Recovered/Resolved with Sequelae]
  - Cardiac failure [Recovering/Resolving]
